FAERS Safety Report 8740393 (Version 3)
Quarter: 2013Q2

REPORT INFORMATION
  Report Type: Spontaneous
  Country: US (occurrence: US)
  Receive Date: 20120823
  Receipt Date: 20130419
  Transmission Date: 20140414
  Serious: Yes (Hospitalization)
  Sender: FDA-Public Use
  Company Number: US-B.I. PHARMACEUTICALS,INC./RIDGEFIELD-2012-BP-19903BP

PATIENT
  Age: 86 Year
  Sex: Female
  Weight: 77.56 kg

DRUGS (10)
  1. PRADAXA [Suspect]
     Indication: ATRIAL FIBRILLATION
     Dosage: 300 MG
     Dates: start: 20110531, end: 20110725
  2. OMEPRAZOLE [Concomitant]
     Dosage: 20 MG
  3. FIORICET [Concomitant]
  4. REGLAN [Concomitant]
     Dosage: 15 MG
  5. MULTAQ [Concomitant]
     Dosage: 800 MG
  6. SPIRONOLACTONE [Concomitant]
     Dosage: 100 MG
  7. LASIX [Concomitant]
     Indication: SWELLING
  8. KLONOPIN [Concomitant]
     Dosage: 0.5 MG
  9. LEVOTHYROXINE [Concomitant]
     Dosage: 0.05 MG
  10. MIRAPEX [Concomitant]

REACTIONS (1)
  - Gastrointestinal haemorrhage [Unknown]
